FAERS Safety Report 4691118-7 (Version None)
Quarter: 2005Q2

REPORT INFORMATION
  Report Type: 
  Country: None (occurrence: None)
  Receive Date: 20050610
  Receipt Date: 20050527
  Transmission Date: 20051028
  Serious: Yes (Other)
  Sender: FDA-Public Use
  Company Number: C-05-006-M

PATIENT
  Age: 1 Year
  Sex: Male

DRUGS (1)
  1. CYSTADANE [Suspect]

REACTIONS (6)
  - AGITATION [None]
  - IRRITABILITY [None]
  - PERSONALITY DISORDER [None]
  - PSYCHOMOTOR HYPERACTIVITY [None]
  - SLEEP DISORDER [None]
  - STOMACH DISCOMFORT [None]
